FAERS Safety Report 7445858-7 (Version None)
Quarter: 2011Q2

REPORT INFORMATION
  Report Type: 
  Country: None (occurrence: None)
  Receive Date: 20110429
  Receipt Date: 20110426
  Transmission Date: 20111010
  Serious: No
  Sender: FDA-Public Use
  Company Number: US-PFIZER INC-2011086769

PATIENT
  Sex: Female
  Weight: 63.492 kg

DRUGS (3)
  1. ADVIL LIQUI-GELS [Suspect]
     Dosage: 200 MG, AS NEEDED
     Route: 048
     Dates: start: 20110401, end: 20110401
  2. ADVIL LIQUI-GELS [Suspect]
     Indication: PAIN
     Dosage: 200 MG, AS NEEDED
     Dates: start: 20110417
  3. TOPROL-XL [Concomitant]
     Indication: HYPERTENSION
     Dosage: 25 MG, 1X/DAY
     Route: 048
     Dates: start: 20110101

REACTIONS (2)
  - INSOMNIA [None]
  - DRUG INEFFECTIVE [None]
